FAERS Safety Report 19782986 (Version 3)
Quarter: 2021Q4

REPORT INFORMATION
  Report Type: Spontaneous
  Country: DK (occurrence: DK)
  Receive Date: 20210903
  Receipt Date: 20211123
  Transmission Date: 20220303
  Serious: Yes (Other)
  Sender: FDA-Public Use
  Company Number: DK-BEH-2021135390

PATIENT
  Age: 9 Year
  Sex: Male
  Weight: 35.6 kg

DRUGS (1)
  1. HIZENTRA [Suspect]
     Active Substance: HUMAN IMMUNOGLOBULIN G
     Indication: Hypogammaglobulinaemia
     Dosage: 3000 MILLIGRAM/15 ML, QW
     Route: 065
     Dates: start: 202003

REACTIONS (7)
  - Administration site wound [Unknown]
  - Wound infection [Unknown]
  - Administration site vesicles [Unknown]
  - Administration site discolouration [Unknown]
  - Wound complication [Unknown]
  - Wound secretion [Unknown]
  - Injection site pallor [Unknown]

NARRATIVE: CASE EVENT DATE: 20201001
